FAERS Safety Report 7812674 (Version 3)
Quarter: 2012Q4

REPORT INFORMATION
  Report Type: Report from Study
  Country: US (occurrence: US)
  Receive Date: 20110215
  Receipt Date: 20120904
  Transmission Date: 20130627
  Serious: Yes (Other)
  Sender: FDA-Public Use
  Company Number: US-JNJFOC-20110202573

PATIENT
  Age: 16 Year
  Sex: Male
  Weight: 59.6 kg

DRUGS (5)
  1. REMICADE [Suspect]
     Indication: INFLAMMATORY BOWEL DISEASE
     Route: 042
     Dates: start: 20051114, end: 20101218
  2. 5-ASA [Concomitant]
     Route: 048
  3. ULTRAM [Concomitant]
  4. ESOMEPRAZOLE [Concomitant]
  5. AZELASTINE [Concomitant]

REACTIONS (2)
  - Drug hypersensitivity [Recovered/Resolved]
  - Infusion related reaction [Recovered/Resolved]
